FAERS Safety Report 22105682 (Version 2)
Quarter: 2023Q2

REPORT INFORMATION
  Report Type: Spontaneous
  Country: US (occurrence: None)
  Receive Date: 20230317
  Receipt Date: 20230414
  Transmission Date: 20230722
  Serious: No
  Sender: FDA-Public Use
  Company Number: 2023A058267

PATIENT
  Age: 68 Year
  Sex: Female

DRUGS (14)
  1. TAGRISSO [Suspect]
     Active Substance: OSIMERTINIB
     Dosage: DOSE UNKNOWN
     Route: 048
  2. METOPROLOL [Suspect]
     Active Substance: METOPROLOL
     Indication: Heart rate increased
     Dosage: DOSE UNKNOWN
  3. GILOTRIF [Suspect]
     Active Substance: AFATINIB
     Indication: Non-small cell lung cancer
     Route: 048
  4. GILOTRIF [Suspect]
     Active Substance: AFATINIB
     Indication: Non-small cell lung cancer
     Route: 048
  5. METOPROLOL [Concomitant]
     Active Substance: METOPROLOL
     Indication: Heart rate increased
  6. ADVIL [Concomitant]
     Active Substance: IBUPROFEN
  7. ALLEGRA [Concomitant]
     Active Substance: FEXOFENADINE HYDROCHLORIDE
  8. BENADRYL [Concomitant]
     Active Substance: DIPHENHYDRAMINE HYDROCHLORIDE
  9. CALTRATE [Concomitant]
     Active Substance: CALCIUM CARBONATE
  10. FLUTICASONE [Concomitant]
     Active Substance: FLUTICASONE
  11. GAVISCON [Concomitant]
     Active Substance: ALUMINUM HYDROXIDE\MAGNESIUM CARBONATE
  12. LOPERAMIDE [Concomitant]
     Active Substance: LOPERAMIDE
  13. XANAX [Concomitant]
     Active Substance: ALPRAZOLAM
  14. XGEVA [Concomitant]
     Active Substance: DENOSUMAB

REACTIONS (22)
  - Weight decreased [Recovering/Resolving]
  - Dry skin [Recovering/Resolving]
  - Diarrhoea [Recovering/Resolving]
  - Decreased appetite [Not Recovered/Not Resolved]
  - Nausea [Unknown]
  - Rash [Unknown]
  - Constipation [Unknown]
  - Onychoclasis [Unknown]
  - Muscle spasms [Unknown]
  - Frequent bowel movements [Unknown]
  - Dyspepsia [Unknown]
  - Eructation [Unknown]
  - Rhinorrhoea [Not Recovered/Not Resolved]
  - Fatigue [Not Recovered/Not Resolved]
  - Nail injury [Unknown]
  - Heart rate increased [Unknown]
  - Drug ineffective [Unknown]
  - Visual impairment [Unknown]
  - Diplopia [Unknown]
  - Photophobia [Unknown]
  - Metamorphopsia [Unknown]
  - Off label use [Unknown]

NARRATIVE: CASE EVENT DATE: 20221101
